FAERS Safety Report 5330771-1 (Version None)
Quarter: 2007Q2

REPORT INFORMATION
  Report Type: 
  Country: None (occurrence: None)
  Receive Date: 20070522
  Receipt Date: 20070514
  Transmission Date: 20071010
  Serious: Yes (Hospitalization)
  Sender: FDA-Public Use
  Company Number: BR-JNJFOC-20070504595

PATIENT
  Age: 6 Year
  Sex: Male
  Weight: 15 kg

DRUGS (2)
  1. TYLENOL (CAPLET) [Suspect]
     Indication: ABDOMINAL PAIN
     Route: 048
  2. TYLENOL (CAPLET) [Suspect]
     Indication: PYREXIA
     Route: 048

REACTIONS (3)
  - ABDOMINAL PAIN [None]
  - PYREXIA [None]
  - VOMITING [None]
